FAERS Safety Report 4523558-0 (Version None)
Quarter: 2004Q4

REPORT INFORMATION
  Report Type: 
  Country: None (occurrence: None)
  Receive Date: 20041210
  Receipt Date: 20041203
  Transmission Date: 20050328
  Serious: Yes (Life-Threatening)
  Sender: FDA-Public Use
  Company Number: US-ROCHE-388424

PATIENT
  Age: 22 Year
  Sex: Female

DRUGS (1)
  1. KYTRIL [Suspect]
     Route: 065
     Dates: start: 20041202, end: 20041202

REACTIONS (1)
  - CARDIAC ARREST [None]
